FAERS Safety Report 5772838-X (Version None)
Quarter: 2008Q2

REPORT INFORMATION
  Report Type: 
  Country: None (occurrence: None)
  Receive Date: 20080611
  Receipt Date: 20080530
  Transmission Date: 20081010
  Serious: Yes (Other)
  Sender: FDA-Public Use
  Company Number: 231094J08USA

PATIENT
  Age: 48 Year
  Sex: Female
  Weight: 54.4316 kg

DRUGS (15)
  1. REBIF [Suspect]
     Indication: MULTIPLE SCLEROSIS
     Dosage: 44 MCG, 3 IN 1 WEEKS, SUBCUTANEOUS
     Route: 058
     Dates: start: 20030307
  2. WELLBUTRIN [Concomitant]
  3. CALCIUM (CALCIUM-S-ANDOZ/00009901 [Concomitant]
  4. XANAX [Concomitant]
  5. FOSAMAX [Concomitant]
  6. LORATAB (LORATADINE) [Concomitant]
  7. VITAMIN B COMPLEX (B-KOMPLEX) [Concomitant]
  8. BACLOFEN [Concomitant]
  9. FISH OIL (FISH OIL) [Concomitant]
  10. FOLIC ACID [Concomitant]
  11. VITAMIN B12 [Concomitant]
  12. ASCORBIC ACID [Concomitant]
  13. MAGNESIUM (MAGNESIUM HYDROXIDE) [Concomitant]
  14. MENAPAUSE COMPLEX (SOY ISOFLAVONES) [Concomitant]
  15. VITAMIN E (TOCOPHEROL/00110501/) [Concomitant]

REACTIONS (4)
  - BACK PAIN [None]
  - NEPHROLITHIASIS [None]
  - RENAL IMPAIRMENT [None]
  - URETERAL DISORDER [None]
